FAERS Safety Report 6703505-3 (Version None)
Quarter: 2010Q2

REPORT INFORMATION
  Report Type: 
  Country: None (occurrence: None)
  Receive Date: 20100430
  Receipt Date: 20100122
  Transmission Date: 20101027
  Serious: Yes (Death)
  Sender: FDA-Public Use
  Company Number: US-BAYER-201021024GPV

PATIENT

DRUGS (8)
  1. FLUDARABINE [Suspect]
     Indication: PROPHYLAXIS AGAINST GRAFT VERSUS HOST DISEASE
     Dosage: DAY -7- -3
     Route: 042
  2. MELPHALAN HYDROCHLORIDE [Suspect]
     Indication: PROPHYLAXIS AGAINST GRAFT VERSUS HOST DISEASE
     Dosage: DAY -2
     Route: 042
  3. THYMOGLOBULIN [Suspect]
     Indication: PROPHYLAXIS AGAINST GRAFT VERSUS HOST DISEASE
     Dosage: DAY -4
  4. THYMOGLOBULIN [Suspect]
     Dosage: DAY -3 AND -2
  5. THYMOGLOBULIN [Suspect]
     Dosage: DAY -1 OR 0
  6. SOLU-MEDROL [Concomitant]
     Indication: STEM CELL TRANSPLANT
  7. DIPHENHYDRAMINE [Concomitant]
     Indication: STEM CELL TRANSPLANT
  8. ACETAMINOPHEN [Concomitant]
     Indication: STEM CELL TRANSPLANT

REACTIONS (2)
  - ACUTE RESPIRATORY DISTRESS SYNDROME [None]
  - PULMONARY ALVEOLAR HAEMORRHAGE [None]
